FAERS Safety Report 18268247 (Version 1)
Quarter: 2020Q3

REPORT INFORMATION
  Report Type: Spontaneous
  Country: US (occurrence: US)
  Receive Date: 20200915
  Receipt Date: 20200915
  Transmission Date: 20201103
  Serious: Yes (Hospitalization)
  Sender: FDA-Public Use
  Company Number: None

PATIENT
  Age: 41 Year
  Sex: Female
  Weight: 105.3 kg

DRUGS (1)
  1. FARXIGA [Suspect]
     Active Substance: DAPAGLIFLOZIN PROPANEDIOL
     Indication: TYPE 2 DIABETES MELLITUS
     Route: 048
     Dates: start: 20200721, end: 20200911

REACTIONS (3)
  - Pancreatitis acute [None]
  - Hypertriglyceridaemia [None]
  - Chest pain [None]

NARRATIVE: CASE EVENT DATE: 20200911
